FAERS Safety Report 5309631-8 (Version None)
Quarter: 2007Q2

REPORT INFORMATION
  Report Type: 
  Country: None (occurrence: None)
  Receive Date: 20070427
  Receipt Date: 20060613
  Transmission Date: 20071010
  Serious: No
  Sender: FDA-Public Use
  Company Number: US-GLAXOSMITHKLINE-A0608854A

PATIENT
  Age: 43 Year
  Sex: Female

DRUGS (6)
  1. DEXEDRINE [Suspect]
     Indication: ATTENTION DEFICIT/HYPERACTIVITY DISORDER
     Dosage: 10MG SIX TIMES PER DAY
     Route: 048
     Dates: start: 19920101
  2. EFFEXOR [Concomitant]
  3. PROZAC [Concomitant]
  4. GEODON [Concomitant]
  5. CLARITIN [Concomitant]
  6. NAPROXEN [Concomitant]

REACTIONS (1)
  - TEETH BRITTLE [None]
